FAERS Safety Report 5680004-1 (Version None)
Quarter: 2008Q1

REPORT INFORMATION
  Report Type: 
  Country: None (occurrence: None)
  Receive Date: 20080325
  Receipt Date: 20080325
  Transmission Date: 20080703
  Serious: Yes (Disabling)
  Sender: FDA-Public Use
  Company Number: None

PATIENT
  Sex: Female
  Weight: 81.6475 kg

DRUGS (1)
  1. ZICAM NASAL GEL [Suspect]
     Indication: NASOPHARYNGITIS
     Dosage: ONLY TWICE
     Dates: start: 20080204

REACTIONS (4)
  - AGEUSIA [None]
  - ANOSMIA [None]
  - HEADACHE [None]
  - THERMAL BURN [None]
